FAERS Safety Report 24210894 (Version 2)
Quarter: 2024Q3

REPORT INFORMATION
  Report Type: Spontaneous
  Country: US (occurrence: US)
  Receive Date: 20240814
  Receipt Date: 20240822
  Transmission Date: 20241017
  Serious: Yes (Other)
  Sender: TAKEDA
  Company Number: US-TAKEDA-2024TUS079832

PATIENT
  Age: 64 Year
  Sex: Male

DRUGS (6)
  1. GAMMAGARD S/D [Suspect]
     Active Substance: HUMAN IMMUNOGLOBULIN G
     Indication: Nervous system disorder
     Dosage: 35 GRAM, QD
     Route: 065
     Dates: start: 2017
  2. GAMMAGARD S/D [Suspect]
     Active Substance: HUMAN IMMUNOGLOBULIN G
     Indication: Nervous system disorder
     Dosage: 35 GRAM, QD
     Route: 065
     Dates: start: 2017
  3. GAMMAGARD S/D [Suspect]
     Active Substance: HUMAN IMMUNOGLOBULIN G
     Indication: Chronic inflammatory demyelinating polyradiculoneuropathy
  4. GAMMAGARD S/D [Suspect]
     Active Substance: HUMAN IMMUNOGLOBULIN G
     Indication: Chronic inflammatory demyelinating polyradiculoneuropathy
  5. NALTREXONE [Concomitant]
     Active Substance: NALTREXONE
     Dosage: UNK
     Route: 065
  6. GABAPENTIN [Concomitant]
     Active Substance: GABAPENTIN
     Dosage: UNK
     Route: 065

REACTIONS (12)
  - Metal poisoning [Unknown]
  - Liver injury [Unknown]
  - Non-cirrhotic portal hypertension [Unknown]
  - Arrhythmia [Unknown]
  - Blood iron increased [Unknown]
  - Serum ferritin increased [Unknown]
  - Cardiac disorder [Unknown]
  - Haemochromatosis [Unknown]
  - Liver iron concentration abnormal [Unknown]
  - Fluid retention [Unknown]
  - Product use in unapproved indication [Unknown]
  - Abdominal distension [Unknown]

NARRATIVE: CASE EVENT DATE: 20170101
